FAERS Safety Report 9772501 (Version 1)
Quarter: 2013Q4

REPORT INFORMATION
  Report Type: Spontaneous
  Country: FR (occurrence: None)
  Receive Date: 20131217
  Receipt Date: 20131217
  Transmission Date: 20140711
  Serious: Yes (Death)
  Sender: FDA-Public Use
  Company Number: 7255305

PATIENT
  Age: 41 Year
  Sex: Female

DRUGS (15)
  1. LEVOTHYROX (LEVOTHYROXINE SODIUM) INFUSION [Suspect]
     Indication: PRODUCT USED FOR UNKNOWN INDICATION
     Route: 048
     Dates: start: 20131024
  2. NIZORAL [Suspect]
  3. DUROGESIC [Suspect]
     Indication: PRODUCT USED FOR UNKNOWN INDICATION
     Dosage: 12 MICROGRAMS/HOUR (2.1 MG/5.25 CM2, TRANSDERMAL DEVICE
  4. ACTISKENAN [Suspect]
     Indication: PRODUCT USED FOR UNKNOWN INDICATION
  5. LASILIX [Suspect]
     Indication: PRODUCT USED FOR UNKNOWN INDICATION
  6. NOCTAMID [Suspect]
     Indication: PRODUCT USED FOR UNKNOWN INDICATION
  7. TRILEPTAL [Suspect]
     Indication: PRODUCT USED FOR UNKNOWN INDICATION
  8. ATARAX [Suspect]
     Indication: PRODUCT USED FOR UNKNOWN INDICATION
  9. FLUOXETINE (FLUOXETINE) [Suspect]
     Indication: PRODUCT USED FOR UNKNOWN INDICATION
  10. SERESTA [Suspect]
     Indication: PRODUCT USED FOR UNKNOWN INDICATION
  11. MOVICOL [Suspect]
     Indication: PRODUCT USED FOR UNKNOWN INDICATION
     Dosage: POWDER FOR ORAL SOLUTION IN SACHET
     Route: 048
  12. FUNGIZONE [Suspect]
     Indication: PRODUCT USED FOR UNKNOWN INDICATION
  13. GAVISCON [Suspect]
     Indication: PRODUCT USED FOR UNKNOWN INDICATION
     Dosage: IN VIAL
  14. THERALENE [Suspect]
  15. NOZINAN [Suspect]
     Indication: PRODUCT USED FOR UNKNOWN INDICATION

REACTIONS (1)
  - Death [None]
